FAERS Safety Report 6885383-5 (Version None)
Quarter: 2010Q3

REPORT INFORMATION
  Report Type: 
  Country: None (occurrence: None)
  Receive Date: 20100729
  Receipt Date: 20080303
  Transmission Date: 20110219
  Serious: No
  Sender: FDA-Public Use
  Company Number: US-PFIZER INC-2007099210

PATIENT
  Sex: Male
  Weight: 100 kg

DRUGS (7)
  1. CELEBREX [Suspect]
     Indication: OSTEOARTHRITIS
     Route: 048
  2. AMITRIPTYLINE HYDROCHLORIDE [Concomitant]
  3. ACETYLSALICYLIC ACID SRT [Concomitant]
  4. GUAIFENESIN [Concomitant]
  5. WELLBUTRIN [Concomitant]
  6. METHYLPHENIDATE [Concomitant]
  7. HYDROCHLOROTHIAZIDE [Concomitant]

REACTIONS (2)
  - DRUG INEFFECTIVE [None]
  - UNEVALUABLE EVENT [None]
